FAERS Safety Report 6365510-9 (Version None)
Quarter: 2009Q3

REPORT INFORMATION
  Report Type: 
  Country: None (occurrence: None)
  Receive Date: 20090919
  Receipt Date: 20090817
  Transmission Date: 20100115
  Serious: No
  Sender: FDA-Public Use
  Company Number: US-ABBOTT-09P-163-0592574-00

PATIENT
  Age: 40 Year
  Sex: Female

DRUGS (1)
  1. HUMIRA [Suspect]
     Indication: DRUG USE FOR UNKNOWN INDICATION
     Dates: start: 20090101

REACTIONS (2)
  - DRY SKIN [None]
  - WEIGHT INCREASED [None]
